FAERS Safety Report 6108088-7 (Version None)
Quarter: 2009Q1

REPORT INFORMATION
  Report Type: 
  Country: None (occurrence: None)
  Receive Date: 20090309
  Receipt Date: 20090225
  Transmission Date: 20090719
  Serious: Yes (Other)
  Sender: FDA-Public Use
  Company Number: FR-ROCHE-617299

PATIENT
  Age: 48 Year
  Sex: Male

DRUGS (2)
  1. PEGASYS [Suspect]
     Indication: HEPATITIS C
     Route: 065
  2. NEORECORMON [Suspect]
     Indication: DRUG USE FOR UNKNOWN INDICATION
     Dosage: TREATMENT STOPPED
     Route: 065

REACTIONS (2)
  - ANAEMIA [None]
  - PHLEBITIS [None]
